FAERS Safety Report 4637487-5 (Version None)
Quarter: 2005Q1

REPORT INFORMATION
  Report Type: 
  Country: None (occurrence: None)
  Receive Date: 20050325
  Receipt Date: 20041207
  Transmission Date: 20050727
  Serious: No
  Sender: FDA-Public Use
  Company Number: USA041285588

PATIENT
  Sex: Female

DRUGS (2)
  1. FORTEO [Suspect]
     Indication: OSTEOPOROSIS
     Dates: start: 20041206
  2. VICODIN [Concomitant]

REACTIONS (5)
  - ARTHRALGIA [None]
  - BONE PAIN [None]
  - DYSPNOEA [None]
  - FATIGUE [None]
  - FEELING ABNORMAL [None]
